FAERS Safety Report 13344232 (Version 3)
Quarter: 2017Q2

REPORT INFORMATION
  Report Type: Report from Study
  Country: CO (occurrence: CO)
  Receive Date: 20170316
  Receipt Date: 20170406
  Transmission Date: 20170830
  Serious: Yes (Death, Hospitalization)
  Sender: FDA-Public Use
  Company Number: CO-ROCHE-1906586

PATIENT
  Age: 78 Year
  Sex: Female

DRUGS (1)
  1. MABTHERA [Suspect]
     Active Substance: RITUXIMAB
     Indication: NON-HODGKIN^S LYMPHOMA
     Route: 042
     Dates: start: 20170102, end: 20170102

REACTIONS (3)
  - Pulmonary oedema [Fatal]
  - Intestinal obstruction [Fatal]
  - Gastrointestinal infection [Fatal]

NARRATIVE: CASE EVENT DATE: 20170112
